FAERS Safety Report 15751186 (Version 1)
Quarter: 2018Q4

REPORT INFORMATION
  Report Type: Report from Study
  Country: US (occurrence: US)
  Receive Date: 20181221
  Receipt Date: 20181221
  Transmission Date: 20190205
  Serious: Yes (Hospitalization, Other)
  Sender: FDA-Public Use
  Company Number: PHEH2018US053331

PATIENT
  Sex: Male

DRUGS (1)
  1. ENTRESTO [Suspect]
     Active Substance: SACUBITRIL\VALSARTAN
     Indication: CARDIAC FAILURE CHRONIC
     Route: 048

REACTIONS (6)
  - Appetite disorder [Unknown]
  - Malignant melanoma [Unknown]
  - Constipation [Unknown]
  - Myocardial infarction [Unknown]
  - Memory impairment [Unknown]
  - Weight decreased [Unknown]
